FAERS Safety Report 4787043-3 (Version None)
Quarter: 2005Q3

REPORT INFORMATION
  Report Type: 
  Country: None (occurrence: None)
  Receive Date: 20050930
  Receipt Date: 20050915
  Transmission Date: 20060218
  Serious: Yes (Hospitalization)
  Sender: FDA-Public Use
  Company Number: 2005122567

PATIENT
  Age: 24 Year
  Sex: Female
  Weight: 44.9061 kg

DRUGS (3)
  1. ACTIFED [Suspect]
     Indication: SINUS CONGESTION
     Dosage: 2 CAPLETS EVERY 10-12 HRS, ORAL
     Route: 048
     Dates: start: 20050830
  2. ROBITUSSIN-DM (DEXTROMETHORPHAN HYDROBROMIDE, ETHANOL, GUAIFENESIN) [Concomitant]
  3. PRENATAL VITAMINS (ASCORBIC ACID, BIOTIN, MINERALS NOS, NICOTINIC ACID [Concomitant]

REACTIONS (2)
  - ABORTION SPONTANEOUS INCOMPLETE [None]
  - DRUG EXPOSURE DURING PREGNANCY [None]
